FAERS Safety Report 7482462-9 (Version None)
Quarter: 2011Q2

REPORT INFORMATION
  Report Type: 
  Country: None (occurrence: None)
  Receive Date: 20110516
  Receipt Date: 20110503
  Transmission Date: 20111010
  Serious: Yes (Other)
  Sender: FDA-Public Use
  Company Number: US-WATSON-2011-06350

PATIENT
  Age: 38 Year
  Sex: Female

DRUGS (1)
  1. TOPIRAMATE [Suspect]
     Indication: EPILEPSY
     Dosage: 400 MG, DAILY

REACTIONS (3)
  - RETINOGRAM ABNORMAL [None]
  - VISUAL ACUITY REDUCED [None]
  - MACULOPATHY [None]
